FAERS Safety Report 15429767 (Version 1)
Quarter: 2018Q3

REPORT INFORMATION
  Report Type: Spontaneous
  Country: US (occurrence: US)
  Receive Date: 20180922
  Receipt Date: 20180922
  Transmission Date: 20181010
  Serious: Yes (Disabling, Other)
  Sender: FDA-Public Use
  Company Number: None

PATIENT
  Age: 46 Year
  Sex: Female
  Weight: 68.4 kg

DRUGS (20)
  1. OXYCODONE/ACETONENOPHEN 7.5/325 [Suspect]
     Active Substance: ACETAMINOPHEN\OXYCODONE HYDROCHLORIDE
     Indication: EHLERS-DANLOS SYNDROME
     Dosage: ?          QUANTITY:90 TABLET(S);?
     Route: 048
     Dates: start: 20180421, end: 20180922
  2. NOVOLOG [Concomitant]
     Active Substance: INSULIN ASPART
  3. BACLOFEN. [Concomitant]
     Active Substance: BACLOFEN
  4. MS CONTIN [Concomitant]
     Active Substance: MORPHINE SULFATE
  5. CRESTOR [Concomitant]
     Active Substance: ROSUVASTATIN CALCIUM
  6. KIRKLAND VITAMIN D SUPPLEMENT [Concomitant]
  7. JUNEL [Concomitant]
     Active Substance: ETHINYL ESTRADIOL\NORETHINDRONE ACETATE
  8. VOLTAREN [Concomitant]
     Active Substance: DICLOFENAC SODIUM
  9. OXYCODONE/ACETONENOPHEN 7.5/325 [Suspect]
     Active Substance: ACETAMINOPHEN\OXYCODONE HYDROCHLORIDE
     Indication: SPINAL OSTEOARTHRITIS
  10. ADVIL [Concomitant]
     Active Substance: IBUPROFEN
  11. MECLIZINE [Concomitant]
     Active Substance: MECLIZINE HYDROCHLORIDE
  12. METOPROLOL. [Concomitant]
     Active Substance: METOPROLOL
  13. KIRKLAND SENIOR MULTIVITAMIN [Concomitant]
  14. BISCODYL [Concomitant]
     Active Substance: BISACODYL
  15. KLONOPIN [Concomitant]
     Active Substance: CLONAZEPAM
  16. MIRTAZAPINE. [Concomitant]
     Active Substance: MIRTAZAPINE
  17. PHENERGAN [Concomitant]
     Active Substance: PROMETHAZINE HYDROCHLORIDE
  18. MIRALAX [Concomitant]
     Active Substance: POLYETHYLENE GLYCOL 3350
  19. PERCOCET [Concomitant]
     Active Substance: ACETAMINOPHEN\OXYCODONE HYDROCHLORIDE
  20. KLONOPIN [Concomitant]
     Active Substance: CLONAZEPAM

REACTIONS (13)
  - Cervicogenic headache [None]
  - Insurance issue [None]
  - Dehydration [None]
  - Product substitution issue [None]
  - Nausea [None]
  - Drug ineffective [None]
  - Therapeutic response changed [None]
  - Pharyngeal oedema [None]
  - Allergic reaction to excipient [None]
  - Migraine [None]
  - Headache [None]
  - Throat irritation [None]
  - Vomiting [None]

NARRATIVE: CASE EVENT DATE: 20180824
